FAERS Safety Report 7607706-1 (Version None)
Quarter: 2011Q3

REPORT INFORMATION
  Report Type: 
  Country: None (occurrence: None)
  Receive Date: 20110713
  Receipt Date: 20110525
  Transmission Date: 20111222
  Serious: Yes (Other)
  Sender: FDA-Public Use
  Company Number: PHHY2011US46677

PATIENT
  Age: 33 Year
  Sex: Female

DRUGS (4)
  1. VITAMIN B-12 [Concomitant]
     Dosage: UNK
  2. VITAMIN B1 TAB [Concomitant]
     Dosage: UNK
  3. MULTI-VITAMINS [Concomitant]
     Dosage: UNK
  4. DIOVAN HCT [Suspect]
     Dosage: 160/25MG ONCE DAILY

REACTIONS (2)
  - VIITH NERVE PARALYSIS [None]
  - MIGRAINE [None]
